FAERS Safety Report 7299382-5 (Version None)
Quarter: 2011Q1

REPORT INFORMATION
  Report Type: 
  Country: None (occurrence: None)
  Receive Date: 20110217
  Receipt Date: 20110210
  Transmission Date: 20110831
  Serious: Yes (Other)
  Sender: FDA-Public Use
  Company Number: B0695738A

PATIENT
  Sex: Male

DRUGS (1)
  1. AVOLVE [Suspect]
     Route: 048

REACTIONS (1)
  - HYPOGLYCAEMIA [None]
